FAERS Safety Report 8496228-4 (Version None)
Quarter: 2012Q3

REPORT INFORMATION
  Report Type: 
  Country: None (occurrence: None)
  Receive Date: 20120709
  Receipt Date: 20120702
  Transmission Date: 20120928
  Serious: Yes (Other)
  Sender: FDA-Public Use
  Company Number: JP-JNJFOC-20120702973

PATIENT

DRUGS (1)
  1. NIZORAL [Suspect]
     Indication: THERMAL BURN
     Route: 061

REACTIONS (2)
  - OFF LABEL USE [None]
  - ULCER [None]
